FAERS Safety Report 14566525 (Version 2)
Quarter: 2018Q1

REPORT INFORMATION
  Report Type: Spontaneous
  Country: GB (occurrence: GB)
  Receive Date: 20180223
  Receipt Date: 20180330
  Transmission Date: 20180509
  Serious: Yes (Other)
  Sender: FDA-Public Use
  Company Number: GB-ASTRAZENECA-2018SE20498

PATIENT
  Age: 23 Year
  Sex: Female

DRUGS (7)
  1. METFORMIN [Concomitant]
     Active Substance: METFORMIN HYDROCHLORIDE
  2. FORXIGA [Suspect]
     Active Substance: DAPAGLIFLOZIN
     Indication: TYPE 1 DIABETES MELLITUS
     Dosage: 10.0MG UNKNOWN
     Route: 048
     Dates: start: 201712
  3. FORXIGA [Suspect]
     Active Substance: DAPAGLIFLOZIN
     Indication: OBESITY
     Dosage: 5.0MG UNKNOWN
     Route: 048
     Dates: start: 201712
  4. TRESIBA [Concomitant]
     Active Substance: INSULIN DEGLUDEC
  5. FORXIGA [Suspect]
     Active Substance: DAPAGLIFLOZIN
     Indication: OBESITY
     Dosage: 10.0MG UNKNOWN
     Route: 048
     Dates: start: 201712
  6. NOVORAPID [Concomitant]
     Active Substance: INSULIN ASPART
     Route: 058
  7. FORXIGA [Suspect]
     Active Substance: DAPAGLIFLOZIN
     Indication: TYPE 1 DIABETES MELLITUS
     Dosage: 5.0MG UNKNOWN
     Route: 048
     Dates: start: 201712

REACTIONS (3)
  - Diabetic ketoacidosis [Unknown]
  - Product use in unapproved indication [Not Recovered/Not Resolved]
  - Off label use [Not Recovered/Not Resolved]
